FAERS Safety Report 4846590-6 (Version None)
Quarter: 2005Q4

REPORT INFORMATION
  Report Type: 
  Country: None (occurrence: None)
  Receive Date: 20051202
  Receipt Date: 20051121
  Transmission Date: 20060501
  Serious: Yes (Hospitalization)
  Sender: FDA-Public Use
  Company Number: US-2005-024530

PATIENT
  Age: 69 Year
  Sex: Male

DRUGS (1)
  1. BETASERON [Suspect]
     Indication: SECONDARY PROGRESSIVE MULTIPLE SCLEROSIS
     Dosage: 4 MIU, EVERY 2D, SUBCUTANEOUS
     Route: 058
     Dates: start: 20040819, end: 20050926

REACTIONS (1)
  - MUSCLE SPASMS [None]
